FAERS Safety Report 6138470-3 (Version None)
Quarter: 2009Q1

REPORT INFORMATION
  Report Type: 
  Country: None (occurrence: None)
  Receive Date: 20090327
  Receipt Date: 20090316
  Transmission Date: 20090719
  Serious: Yes (Death, Congenital Anomaly, Other)
  Sender: FDA-Public Use
  Company Number: 2009AP001098

PATIENT
  Sex: Female

DRUGS (1)
  1. BENAZEPRIL HCL TABLETS [Suspect]
     Dosage: ; TRPL
     Route: 064

REACTIONS (5)
  - MATERNAL DRUGS AFFECTING FOETUS [None]
  - NEONATAL ANURIA [None]
  - NEONATAL RESPIRATORY FAILURE [None]
  - PERSISTENT FOETAL CIRCULATION [None]
  - PULMONARY HYPOPLASIA [None]
